FAERS Safety Report 24549554 (Version 1)
Quarter: 2024Q4

REPORT INFORMATION
  Report Type: Spontaneous
  Country: CH (occurrence: CH)
  Receive Date: 20241025
  Receipt Date: 20241025
  Transmission Date: 20250115
  Serious: Yes (Other)
  Sender: CSL BEHRING
  Company Number: CH-BEH-2024181001

PATIENT
  Sex: Female

DRUGS (6)
  1. PRIVIGEN [Suspect]
     Active Substance: HUMAN IMMUNOGLOBULIN G
     Indication: Immunodeficiency common variable
     Dosage: 1 VIAL/6 HOURS FOR 48 HOURS, 25 ML
     Route: 042
  2. PRIVIGEN [Suspect]
     Active Substance: HUMAN IMMUNOGLOBULIN G
     Dosage: 1 VIAL/6 HOURS FOR 48 HOURS, 25 ML
     Route: 065
     Dates: start: 20230918
  3. PRIVIGEN [Suspect]
     Active Substance: HUMAN IMMUNOGLOBULIN G
     Dosage: 0.4 G
     Route: 065
     Dates: start: 2013
  4. PRIVIGEN [Suspect]
     Active Substance: HUMAN IMMUNOGLOBULIN G
     Dosage: 0.8 G
     Route: 065
     Dates: start: 2021
  5. CHOLESTYRAMINE [Concomitant]
     Active Substance: CHOLESTYRAMINE
     Dosage: 4 G
  6. BUDESONIDE [Concomitant]
     Active Substance: BUDESONIDE
     Dosage: 9 MG

REACTIONS (14)
  - Coeliac disease [Unknown]
  - Viral infection [Unknown]
  - Gastrointestinal disorder [Unknown]
  - Microvillous inclusion disease [Unknown]
  - Enteritis [Unknown]
  - Norovirus infection [Unknown]
  - Hepatosplenomegaly [Unknown]
  - Abdominal pain [Unknown]
  - Intestinal villi atrophy [Unknown]
  - Microscopic enteritis [Unknown]
  - Intestinal villi atrophy [Unknown]
  - Diarrhoea [Unknown]
  - Weight decreased [Unknown]
  - Gastrointestinal disorder [Unknown]

NARRATIVE: CASE EVENT DATE: 20230101
